FAERS Safety Report 4754703-X (Version None)
Quarter: 2005Q3

REPORT INFORMATION
  Report Type: 
  Country: None (occurrence: None)
  Receive Date: 20050829
  Receipt Date: 20050719
  Transmission Date: 20060218
  Serious: Yes (Disabling)
  Sender: FDA-Public Use
  Company Number: US-MERCK-0507USA02720

PATIENT
  Age: 6 Year
  Sex: Female
  Weight: 39 kg

DRUGS (2)
  1. SINGULAIR [Suspect]
     Route: 048
  2. ZYRTEC [Concomitant]
     Route: 065

REACTIONS (3)
  - ABDOMINAL PAIN UPPER [None]
  - NAUSEA [None]
  - WEIGHT DECREASED [None]
